FAERS Safety Report 20177255 (Version 1)
Quarter: 2021Q4

REPORT INFORMATION
  Report Type: Spontaneous
  Country: US (occurrence: None)
  Receive Date: 20211210
  Receipt Date: 20211210
  Transmission Date: 20220303
  Serious: Yes (Death)
  Sender: FDA-Public Use
  Company Number: None

PATIENT
  Age: 54 Year
  Sex: Male
  Weight: 63.5 kg

DRUGS (6)
  1. MAVYRET [Suspect]
     Active Substance: GLECAPREVIR\PIBRENTASVIR
     Indication: Hepatitis C
     Dosage: FREQUENCY : DAILY;?
     Route: 048
  2. VIAGRA [Concomitant]
     Active Substance: SILDENAFIL CITRATE
     Dates: start: 20210614
  3. Ana prox [Concomitant]
  4. NALOXONE [Concomitant]
     Active Substance: NALOXONE
     Dates: start: 20210614
  5. METOPROLOL [Concomitant]
     Active Substance: METOPROLOL
     Dates: start: 20210614
  6. Iosa rtan [Concomitant]
     Dates: start: 20210614

REACTIONS (1)
  - Death [None]

NARRATIVE: CASE EVENT DATE: 20211029
